FAERS Safety Report 8180647-X (Version None)
Quarter: 2012Q1

REPORT INFORMATION
  Report Type: 
  Country: None (occurrence: None)
  Receive Date: 20120302
  Receipt Date: 20120222
  Transmission Date: 20120608
  Serious: Yes (Other)
  Sender: FDA-Public Use
  Company Number: US-UCBSA-051986

PATIENT
  Sex: Male

DRUGS (3)
  1. KEPPRA XR [Suspect]
     Dosage: KEPPRA 500 MG FOR ABOUT 7 YEARS
  2. KEPPRA XR [Suspect]
     Dosage: UNKNOWN DOSE
  3. VIMPAT [Suspect]
     Dosage: UNKNOWN DOSE

REACTIONS (1)
  - CONVULSION [None]
